FAERS Safety Report 7355244-6 (Version None)
Quarter: 2011Q1

REPORT INFORMATION
  Report Type: 
  Country: None (occurrence: None)
  Receive Date: 20110316
  Receipt Date: 20110309
  Transmission Date: 20110831
  Serious: Yes (Hospitalization)
  Sender: FDA-Public Use
  Company Number: US-BAXTER-2011BH004349

PATIENT
  Age: 56 Year
  Sex: Female

DRUGS (2)
  1. DIANEAL [Suspect]
     Indication: PERITONEAL DIALYSIS
     Route: 033
     Dates: start: 20060101
  2. DIANEAL [Suspect]
     Indication: PERITONEAL DIALYSIS
     Route: 033
     Dates: start: 20060101

REACTIONS (4)
  - TREATMENT NONCOMPLIANCE [None]
  - CARDIAC FAILURE CONGESTIVE [None]
  - MOBILITY DECREASED [None]
  - MYOCARDIAL INFARCTION [None]
